FAERS Safety Report 25098422 (Version 2)
Quarter: 2025Q3

REPORT INFORMATION
  Report Type: Report from Study
  Country: CA (occurrence: CA)
  Receive Date: 20250320
  Receipt Date: 20250803
  Transmission Date: 20251021
  Serious: Yes (Hospitalization)
  Sender: ALEXION PHARMACEUTICALS
  Company Number: CA-AstraZeneca-CH-00822069A

PATIENT
  Sex: Female

DRUGS (4)
  1. TEZEPELUMAB [Suspect]
     Active Substance: TEZEPELUMAB
     Indication: Asthma
  2. BREZTRI [Concomitant]
     Active Substance: BUDESONIDE\FORMOTEROL\GLYCOPYRROLATE
     Route: 065
  3. ATROVENT [Concomitant]
     Active Substance: IPRATROPIUM BROMIDE
     Route: 065
  4. SYMBICORT [Concomitant]
     Active Substance: BUDESONIDE\FORMOTEROL FUMARATE DIHYDRATE
     Route: 065

REACTIONS (1)
  - Feeding disorder [Unknown]
